FAERS Safety Report 4571592-7 (Version None)
Quarter: 2005Q1

REPORT INFORMATION
  Report Type: 
  Country: None (occurrence: None)
  Receive Date: 20050203
  Receipt Date: 20050203
  Transmission Date: 20050727
  Serious: Yes (Other)
  Sender: FDA-Public Use
  Company Number: None

PATIENT
  Sex: Male

DRUGS (2)
  1. ZYDONE - HYDROCODONE./ACETAMINOPHEN [Suspect]
     Indication: PAIN
     Dosage: 400 /10 MG Q 4-6 H  PO
     Route: 048
  2. ULTRAM [Suspect]
     Indication: PAIN
     Dosage: 50 MG Q 4-6 H PO [FEW YEARS]
     Route: 048

REACTIONS (2)
  - DRUG INEFFECTIVE [None]
  - PHARMACEUTICAL PRODUCT COMPLAINT [None]
